FAERS Safety Report 10343066 (Version 1)
Quarter: 2014Q3

REPORT INFORMATION
  Report Type: Other
  Country: US (occurrence: US)
  Receive Date: 20140725
  Receipt Date: 20140725
  Transmission Date: 20150326
  Serious: Yes (Other)
  Sender: FDA-Public Use
  Company Number: US-BRISTOL-MYERS SQUIBB COMPANY-21221601

PATIENT
  Age: 26 Year
  Sex: Female

DRUGS (1)
  1. TRIAMCINOLONE ACE OINTMENT [Suspect]
     Active Substance: TRIAMCINOLONE
     Indication: DERMATITIS
     Dosage: FORMULATION : OINTMENT.
     Route: 061

REACTIONS (1)
  - Dermatitis contact [Recovering/Resolving]
